FAERS Safety Report 5525471-9 (Version None)
Quarter: 2007Q4

REPORT INFORMATION
  Report Type: 
  Country: None (occurrence: None)
  Receive Date: 20071119
  Receipt Date: 20071109
  Transmission Date: 20080405
  Serious: Yes (Hospitalization, Other)
  Sender: FDA-Public Use
  Company Number: 07112312

PATIENT
  Age: 83 Year
  Sex: Male

DRUGS (9)
  1. WARFARIN SODIUM [Suspect]
     Dosage: ORAL
     Route: 048
  2. CHITOSAN [Suspect]
     Dosage: ORAL
     Route: 048
  3. CARVEDILOL [Concomitant]
  4. FUROSEMIDE [Concomitant]
  5. INDAPAMIDE [Concomitant]
  6. AVAPRO [Concomitant]
  7. GLICLAZIDE (GLICLAZIDE) [Concomitant]
  8. METFORMIN HCL [Concomitant]
  9. DIGOXIN [Concomitant]

REACTIONS (3)
  - DRUG INTERACTION POTENTIATION [None]
  - INTERNATIONAL NORMALISED RATIO INCREASED [None]
  - SELF-MEDICATION [None]
